FAERS Safety Report 11664818 (Version 1)
Quarter: 2015Q4

REPORT INFORMATION
  Report Type: Spontaneous
  Country: US (occurrence: None)
  Receive Date: 20151026
  Receipt Date: 20151026
  Transmission Date: 20160304
  Serious: Yes (Other)
  Sender: FDA-Public Use
  Company Number: None

PATIENT
  Age: 33 Year
  Sex: Female
  Weight: 74.84 kg

DRUGS (3)
  1. PALIPERDONE (GENERIC INVEGA) [Concomitant]
  2. MULTIVITAMIN [Suspect]
     Active Substance: VITAMINS
     Indication: VITAMIN SUPPLEMENTATION
     Dosage: 1 PILL
     Route: 048
  3. BRAND NAME INVEGA [Concomitant]

REACTIONS (5)
  - Photopsia [None]
  - Vision blurred [None]
  - Breast enlargement [None]
  - Dizziness [None]
  - Muscle hypertrophy [None]

NARRATIVE: CASE EVENT DATE: 20150924
